FAERS Safety Report 8415245-3 (Version None)
Quarter: 2012Q2

REPORT INFORMATION
  Report Type: 
  Country: None (occurrence: None)
  Receive Date: 20120530
  Receipt Date: 20120517
  Transmission Date: 20120825
  Serious: Yes (Other)
  Sender: FDA-Public Use
  Company Number: JPI-P-021172

PATIENT
  Age: 52 Year
  Sex: Female
  Weight: 90.7194 kg

DRUGS (27)
  1. DULOXETINE HYDROCHLORIDE [Concomitant]
  2. ALPRAZOLAM [Concomitant]
  3. PYRIDOSTIGMINE BROMIDE [Concomitant]
  4. BUPRENORPHINE [Concomitant]
  5. MULTI-VITAMINS [Concomitant]
  6. LEVOTHYROXINE SODIUM [Concomitant]
  7. LIDOCAINE (POULTICE OR PATCH) [Concomitant]
  8. FLAVOCOXID (LIMBREL) [Concomitant]
  9. METOPROLOL TARTRATE [Concomitant]
  10. OMEGA-3-ACID ETHYL ESTERS [Concomitant]
  11. CARISOPRODOL [Concomitant]
  12. MONTELUKAST SODIUM [Concomitant]
  13. L-METHYLFOLATE (DEPLIN) [Concomitant]
  14. ROSUVASTATIN [Concomitant]
  15. XYREM [Suspect]
     Indication: CATAPLEXY
     Dosage: SEE IMAGE
     Route: 048
     Dates: start: 20090624
  16. OLMESARTAN MEDOXOMIL [Concomitant]
  17. PANTOPRAZOLE [Concomitant]
  18. DICLOFENAC EPOLAMINE (POULTICE OR PATCH) [Concomitant]
  19. DICLOFENAC SODIUM (PENNSAID) (SOLUTION) [Concomitant]
  20. OMEGA-3-ACID ETHYL ESTERS (LOVAZA) [Concomitant]
  21. HORMONE REPLACEMENT THERAPY (CREAM) [Concomitant]
  22. RISEDRONATE SODIUM [Concomitant]
  23. TRAZODONE HCL [Concomitant]
  24. VITAMIN D [Concomitant]
  25. LEVOCETIRIZINE DIHYDROCHLORIDE [Concomitant]
  26. FENOFIBRATE [Concomitant]
  27. AMPHETAMINE, DEXTROAMPHETAMINE MIXED SALTS [Concomitant]

REACTIONS (8)
  - LIGAMENT SPRAIN [None]
  - FOOT FRACTURE [None]
  - WEIGHT DECREASED [None]
  - POOR QUALITY SLEEP [None]
  - OSTEOPOROSIS [None]
  - FALL [None]
  - NASOPHARYNGITIS [None]
  - MIGRAINE [None]
